FAERS Safety Report 9405465 (Version 2)
Quarter: 2016Q2

REPORT INFORMATION
  Report Type: Report from Study
  Country: US (occurrence: US)
  Receive Date: 20130717
  Receipt Date: 20160502
  Transmission Date: 20160815
  Serious: Yes (Life-Threatening, Other)
  Sender: FDA-Public Use
  Company Number: US-009507513-1307USA006405

PATIENT

DRUGS (5)
  1. TEMOZOLOMIDE. [Suspect]
     Active Substance: TEMOZOLOMIDE
     Dosage: PART B: 200 MG/M2 ON DAYS 1-5
  2. BEVACIZUMAB [Suspect]
     Active Substance: BEVACIZUMAB
     Indication: GLIOBLASTOMA
     Dosage: PART A: 10 MG/KG EVERY 2 WEEKS
  3. TEMOZOLOMIDE. [Suspect]
     Active Substance: TEMOZOLOMIDE
     Indication: GLIOBLASTOMA
     Dosage: PART A: 75 MG/M2, QD
  4. CARMUSTINE [Suspect]
     Active Substance: CARMUSTINE
     Indication: GLIOBLASTOMA
  5. BEVACIZUMAB [Suspect]
     Active Substance: BEVACIZUMAB
     Dosage: PART B: EVERY 2 WEEKS (DAY 1 AND DAY 15)

REACTIONS (7)
  - Meningitis [Unknown]
  - Infection [Unknown]
  - Wound infection [Unknown]
  - Thrombocytopenia [Unknown]
  - Embolism venous [Unknown]
  - Cerebrovascular accident [Unknown]
  - Enterocolitis [Unknown]
